FAERS Safety Report 9341583 (Version 2)
Quarter: 2013Q3

REPORT INFORMATION
  Report Type: Spontaneous
  Country: JP (occurrence: None)
  Receive Date: 20130528
  Receipt Date: 20130722
  Transmission Date: 20140515
  Serious: Yes (Death)
  Sender: FDA-Public Use
  Company Number: 2013036082

PATIENT
  Age: 79 Year
  Sex: Female

DRUGS (3)
  1. KENKETU GLOVENIN-I (IMMUNE GLOBULIN INTRAVENOUS (HUMAN)) [Suspect]
     Indication: PEMPHIGUS
     Dosage: HIGH DOSE
     Route: 042
  2. PREDNISOLONE (PREDNISOLONE) [Suspect]
     Indication: PEMPHIGUS
  3. METHYLPREDNISOLONE (METHYLPREDNISOLONE) [Suspect]
     Indication: PEMPHIGUS

REACTIONS (4)
  - Bronchitis [None]
  - Respiratory failure [None]
  - Drug ineffective for unapproved indication [None]
  - Obliterative bronchiolitis [None]
